FAERS Safety Report 9972466 (Version 1)
Quarter: 2014Q1

REPORT INFORMATION
  Report Type: Report from Study
  Country: US (occurrence: US)
  Receive Date: 20140306
  Receipt Date: 20140306
  Transmission Date: 20141002
  Serious: No
  Sender: FDA-Public Use
  Company Number: US-ABBVIE-13P-163-1153936-00

PATIENT
  Age: 59 Year
  Sex: Female

DRUGS (16)
  1. HUMIRA [Suspect]
     Indication: COLITIS ULCERATIVE
     Dosage: STARTING DOSE
     Dates: start: 201203, end: 201203
  2. HUMIRA [Suspect]
     Dosage: STARTING DOSE
  3. HUMIRA [Suspect]
     Dates: end: 201203
  4. MECLIZINE [Suspect]
     Indication: VERTIGO
  5. SAVELLA [Concomitant]
     Indication: FIBROMYALGIA
     Dosage: 100 MG DAILY
  6. SAVELLA [Concomitant]
     Indication: SYSTEMIC LUPUS ERYTHEMATOSUS
  7. TOPROL [Concomitant]
     Indication: HYPERTENSION
     Dosage: 50 MG DAILY
  8. TOPAMAX [Concomitant]
     Indication: MIGRAINE
  9. VITAMIN B-12 [Concomitant]
     Indication: PRODUCT USED FOR UNKNOWN INDICATION
  10. BENTYL [Concomitant]
     Indication: PROPHYLAXIS AGAINST GASTROINTESTINAL ULCER
  11. FLEXERIL [Concomitant]
     Indication: MUSCLE RELAXANT THERAPY
     Dosage: AT HOUR OF SLEEP
  12. LISINOPRIL [Concomitant]
     Indication: HYPERTENSION
     Dosage: 10 MG DAILY
  13. VITAMIN D [Concomitant]
     Indication: PRODUCT USED FOR UNKNOWN INDICATION
     Dosage: 5000 IU DAILY
  14. ZYRTEC [Concomitant]
     Indication: HYPERSENSITIVITY
     Dosage: 10 MG DAILY
  15. PEPCID [Concomitant]
     Indication: GASTROOESOPHAGEAL REFLUX DISEASE
     Dosage: 40 MG DAILY
  16. NEXIUM [Concomitant]
     Indication: GASTROOESOPHAGEAL REFLUX DISEASE
     Dosage: 40 MG DAILY

REACTIONS (5)
  - Urticaria [Not Recovered/Not Resolved]
  - Vertigo [Not Recovered/Not Resolved]
  - Rash [Not Recovered/Not Resolved]
  - Nausea [Not Recovered/Not Resolved]
  - Migraine [Not Recovered/Not Resolved]
